FAERS Safety Report 8306916-8 (Version None)
Quarter: 2012Q2

REPORT INFORMATION
  Report Type: 
  Country: None (occurrence: None)
  Receive Date: 20120424
  Receipt Date: 20120417
  Transmission Date: 20120825
  Serious: Yes (Death, Hospitalization)
  Sender: FDA-Public Use
  Company Number: US-CELGENEUS-163-21880-11102368

PATIENT
  Sex: Male

DRUGS (17)
  1. ZOMETA [Concomitant]
     Dosage: 4 MILLIGRAM
     Route: 065
     Dates: start: 20071203, end: 20080827
  2. POTASSIUM CHLORIDE [Concomitant]
     Route: 065
  3. FLEXERIL [Concomitant]
     Route: 065
  4. COREG [Concomitant]
     Route: 065
  5. ASPIRIN [Concomitant]
     Route: 065
  6. ANTIBIOTICS [Concomitant]
     Route: 065
  7. LOPRESSOR [Concomitant]
     Route: 065
  8. REVLIMID [Suspect]
     Dosage: 5 MILLIGRAM
     Route: 048
     Dates: start: 20110225
  9. LEXAPRO [Concomitant]
     Route: 065
  10. REVLIMID [Suspect]
     Indication: MULTIPLE MYELOMA
     Dosage: 15 MILLIGRAM
     Route: 048
     Dates: start: 20070412
  11. ALLOPURINOL [Concomitant]
     Route: 065
  12. LASIX [Concomitant]
     Route: 065
  13. LESCOL [Concomitant]
     Route: 065
  14. ZOMETA [Concomitant]
     Dosage: 3 MILLIGRAM
     Route: 065
     Dates: start: 20081028, end: 20090803
  15. ZOMETA [Concomitant]
     Dosage: 3 MILLIGRAM
     Route: 065
     Dates: start: 20090917
  16. VICODIN [Concomitant]
     Route: 065
  17. AMOXICILLIN [Concomitant]
     Route: 065

REACTIONS (3)
  - OSTEOMYELITIS [None]
  - DEATH [None]
  - OSTEONECROSIS OF JAW [None]
